FAERS Safety Report 8973941 (Version 1)
Quarter: 2012Q4

REPORT INFORMATION
  Report Type: 
  Country: MX (occurrence: MX)
  Receive Date: 20121218
  Receipt Date: 20121218
  Transmission Date: 20130627
  Serious: Yes (Death, Hospitalization, Other)
  Sender: FDA-Public Use
  Company Number: PHHY2012MX116237

PATIENT
  Age: 84 Year

DRUGS (5)
  1. ONBREZ [Suspect]
     Indication: CHRONIC OBSTRUCTIVE PULMONARY DISEASE
     Dosage: 150 ug, QD
     Dates: start: 201007
  2. IPRATROPIUM BROMIDE [Concomitant]
     Indication: LUNG DISORDER
     Dates: start: 2008
  3. BUDESONIDE [Concomitant]
     Indication: LUNG DISORDER
     Dates: start: 2008
  4. NORVASC [Concomitant]
     Dates: start: 2008
  5. ASPIRIN [Concomitant]
     Indication: INFARCTION
     Dates: start: 2008

REACTIONS (11)
  - Chronic obstructive pulmonary disease [Fatal]
  - Septic shock [Fatal]
  - Lower respiratory tract infection [Fatal]
  - Hypertension [Fatal]
  - Pyrexia [Unknown]
  - Blood glucose decreased [Unknown]
  - Pancreatic neoplasm [Unknown]
  - Skin discolouration [Unknown]
  - Yellow skin [Unknown]
  - Pain [Unknown]
  - Blood glucose increased [Unknown]
